FAERS Safety Report 4613216-6 (Version None)
Quarter: 2005Q1

REPORT INFORMATION
  Report Type: 
  Country: None (occurrence: None)
  Receive Date: 20050315
  Receipt Date: 20050301
  Transmission Date: 20050727
  Serious: Yes (Hospitalization)
  Sender: FDA-Public Use
  Company Number: MK200503-0005-1

PATIENT
  Age: 56 Year
  Sex: Male

DRUGS (1)
  1. OPTIRAY 300 [Suspect]
     Indication: COMPUTERISED TOMOGRAM
     Dosage: 100 ML, SINGLE USE
     Dates: start: 20041202, end: 20041202

REACTIONS (4)
  - ARTHRALGIA [None]
  - CHILLS [None]
  - DIARRHOEA [None]
  - HYPERTENSION [None]
